FAERS Safety Report 6701273-2 (Version None)
Quarter: 2010Q2

REPORT INFORMATION
  Report Type: 
  Country: None (occurrence: None)
  Receive Date: 20100427
  Receipt Date: 20100412
  Transmission Date: 20101027
  Serious: Yes (Death, Hospitalization)
  Sender: FDA-Public Use
  Company Number: 2009003722

PATIENT
  Age: 54 Year
  Sex: Male
  Weight: 104 kg

DRUGS (1)
  1. ERLOTINIB HYDROCHLORIDE [Suspect]
     Indication: NON-SMALL CELL LUNG CANCER
     Dosage: (1350 MG), ORAL
     Route: 048
     Dates: start: 20091107, end: 20091116

REACTIONS (1)
  - INTERSTITIAL LUNG DISEASE [None]
